FAERS Safety Report 6709719-0 (Version None)
Quarter: 2010Q2

REPORT INFORMATION
  Report Type: 
  Country: None (occurrence: None)
  Receive Date: 20100504
  Receipt Date: 20100421
  Transmission Date: 20101027
  Serious: No
  Sender: FDA-Public Use
  Company Number: DE-JNJFOC-20100406437

PATIENT
  Sex: Male

DRUGS (5)
  1. DURAGESIC-100 [Suspect]
     Indication: INTERVERTEBRAL DISC PROTRUSION
     Route: 062
  2. DURAGESIC-100 [Suspect]
     Route: 062
  3. DURAGESIC-100 [Suspect]
     Route: 062
  4. DIPYRONE TAB [Concomitant]
     Route: 065
  5. IBUPROFEN [Concomitant]
     Route: 065

REACTIONS (4)
  - BREAKTHROUGH PAIN [None]
  - HYPERHIDROSIS [None]
  - WITHDRAWAL SYNDROME [None]
  - WRONG TECHNIQUE IN DRUG USAGE PROCESS [None]
